FAERS Safety Report 16491839 (Version 1)
Quarter: 2019Q2

REPORT INFORMATION
  Report Type: Spontaneous
  Country: US (occurrence: US)
  Receive Date: 20190518
  Receipt Date: 20190518
  Transmission Date: 20190711
  Serious: Yes (Life-Threatening, Hospitalization)
  Sender: FDA-Public Use
  Company Number: None

PATIENT
  Age: 69 Year
  Sex: Male
  Weight: 93 kg

DRUGS (1)
  1. WARFARIN [Suspect]
     Active Substance: WARFARIN
     Indication: ATRIAL FIBRILLATION
     Dates: start: 20150728

REACTIONS (6)
  - International normalised ratio abnormal [None]
  - Hypotension [None]
  - Anaemia [None]
  - Vomiting [None]
  - Nausea [None]
  - Mallory-Weiss syndrome [None]

NARRATIVE: CASE EVENT DATE: 20190503
